FAERS Safety Report 6398012-4 (Version None)
Quarter: 2009Q4

REPORT INFORMATION
  Report Type: 
  Country: None (occurrence: None)
  Receive Date: 20091013
  Receipt Date: 20091006
  Transmission Date: 20100525
  Serious: Yes (Other)
  Sender: FDA-Public Use
  Company Number: US-ROCHE-657347

PATIENT
  Age: 82 Year
  Sex: Female

DRUGS (1)
  1. BONIVA [Suspect]
     Indication: OSTEOPENIA
     Dosage: DOSE: 3 MG/3ML PER 3 MONTHS
     Route: 042
     Dates: start: 20080101

REACTIONS (1)
  - RIB FRACTURE [None]
